FAERS Safety Report 10933049 (Version 3)
Quarter: 2015Q2

REPORT INFORMATION
  Report Type: Report from Study
  Country: US (occurrence: US)
  Receive Date: 20150320
  Receipt Date: 20150428
  Transmission Date: 20150821
  Serious: Yes (Death, Hospitalization, Other)
  Sender: FDA-Public Use
  Company Number: US-GILEAD-2015-0143005

PATIENT
  Age: 52 Year
  Sex: Female

DRUGS (8)
  1. TOBI [Concomitant]
     Active Substance: TOBRAMYCIN
     Indication: BRONCHIECTASIS
     Route: 055
  2. TOBI [Concomitant]
     Active Substance: TOBRAMYCIN
     Indication: MULTIPLE-DRUG RESISTANCE
  3. AZTREONAM LYSINE [Suspect]
     Active Substance: AZTREONAM LYSINE
     Indication: MULTIPLE-DRUG RESISTANCE
  4. AZTREONAM LYSINE [Suspect]
     Active Substance: AZTREONAM LYSINE
     Indication: UNEVALUABLE EVENT
  5. TOBI [Concomitant]
     Active Substance: TOBRAMYCIN
     Indication: BACTERIAL DISEASE CARRIER
  6. AZTREONAM LYSINE [Suspect]
     Active Substance: AZTREONAM LYSINE
     Indication: BRONCHIECTASIS
     Dosage: 75 MG, ALTERNATING MONTHS
     Route: 055
     Dates: start: 20140808, end: 20150115
  7. AZTREONAM LYSINE [Suspect]
     Active Substance: AZTREONAM LYSINE
     Indication: BACTERIAL DISEASE CARRIER
  8. TOBI [Concomitant]
     Active Substance: TOBRAMYCIN
     Indication: UNEVALUABLE EVENT

REACTIONS (5)
  - Infective exacerbation of bronchiectasis [Unknown]
  - Off label use [Unknown]
  - Death [Fatal]
  - Multiple-drug resistance [Unknown]
  - Bacterial disease carrier [Unknown]

NARRATIVE: CASE EVENT DATE: 201502
